FAERS Safety Report 5068408-1 (Version None)
Quarter: 2006Q3

REPORT INFORMATION
  Report Type: 
  Country: None (occurrence: None)
  Receive Date: 20060802
  Receipt Date: 20050914
  Transmission Date: 20061208
  Serious: No
  Sender: FDA-Public Use
  Company Number: US-BRISTOL-MYERS SQUIBB COMPANY-13110606

PATIENT
  Age: 7 Decade
  Sex: Female

DRUGS (6)
  1. COUMADIN [Suspect]
     Indication: CARDIOVASCULAR DISORDER
     Dosage: DURATION OF COUMADIN THERAPY:  20-30 YEARS; 5 MG 6 TIMES WEEKLY + 7.5 MG 1 TIME WEEKLY
     Route: 048
  2. DIGOXIN [Concomitant]
  3. FUROSEMIDE [Concomitant]
  4. THYROXINE [Concomitant]
  5. IOPIDINE [Concomitant]
  6. FELODIPINE [Concomitant]

REACTIONS (1)
  - HAEMATOMA [None]
